FAERS Safety Report 17884802 (Version 1)
Quarter: 2020Q2

REPORT INFORMATION
  Report Type: Spontaneous
  Country: US (occurrence: US)
  Receive Date: 20200611
  Receipt Date: 20200611
  Transmission Date: 20200714
  Serious: No
  Sender: FDA-Public Use
  Company Number: None

PATIENT
  Sex: Male

DRUGS (2)
  1. METHOCARBAMOL. [Suspect]
     Active Substance: METHOCARBAMOL
  2. PREDNISONE. [Suspect]
     Active Substance: PREDNISONE

REACTIONS (1)
  - Therapy non-responder [None]
